FAERS Safety Report 15648066 (Version 2)
Quarter: 2018Q4

REPORT INFORMATION
  Report Type: Spontaneous
  Country: US (occurrence: US)
  Receive Date: 20181122
  Receipt Date: 20181126
  Transmission Date: 20190205
  Serious: Yes (Other)
  Sender: FDA-Public Use
  Company Number: US-TEVA-2018-US-976942

PATIENT
  Age: 55 Year
  Sex: Male

DRUGS (1)
  1. CLONAZEPAM. [Suspect]
     Active Substance: CLONAZEPAM
     Indication: EYE PAIN
     Route: 065

REACTIONS (9)
  - Depression [Unknown]
  - Pain [Unknown]
  - Product substitution issue [Unknown]
  - Drug ineffective for unapproved indication [Unknown]
  - Emotional disorder [Unknown]
  - Feeding disorder [Unknown]
  - Seizure [Unknown]
  - Neuralgia [Unknown]
  - Eyelid disorder [Unknown]
